FAERS Safety Report 13908731 (Version 2)
Quarter: 2017Q3

REPORT INFORMATION
  Report Type: Report from Study
  Country: None (occurrence: CA)
  Receive Date: 20170827
  Receipt Date: 20170917
  Transmission Date: 20171127
  Serious: Yes (Death, Other)
  Sender: FDA-Public Use
  Company Number: CA-ABBVIE-17K-028-2083810-00

PATIENT
  Sex: Male

DRUGS (2)
  1. PREDNISONE. [Concomitant]
     Active Substance: PREDNISONE
     Indication: CROHN^S DISEASE
     Route: 042
     Dates: start: 20170409
  2. HUMIRA [Suspect]
     Active Substance: ADALIMUMAB
     Indication: CROHN^S DISEASE
     Route: 058
     Dates: start: 20070507, end: 20170510

REACTIONS (7)
  - Malnutrition [Unknown]
  - Multimorbidity [Unknown]
  - Pneumonia [Fatal]
  - Sepsis [Fatal]
  - Hepatic cirrhosis [Unknown]
  - Cholangitis sclerosing [Unknown]
  - Nosocomial infection [Fatal]

NARRATIVE: CASE EVENT DATE: 2017
